FAERS Safety Report 5331688-9 (Version None)
Quarter: 2007Q2

REPORT INFORMATION
  Report Type: 
  Country: None (occurrence: None)
  Receive Date: 20070522
  Receipt Date: 20070518
  Transmission Date: 20071010
  Serious: Yes (Other)
  Sender: FDA-Public Use
  Company Number: GB-MERCK-0705GBR00075

PATIENT
  Sex: Female
  Weight: 80 kg

DRUGS (6)
  1. FOSAMAX [Suspect]
     Indication: OSTEOPOROSIS
     Route: 048
     Dates: start: 20020101, end: 20060901
  2. CALCIUM CARBONATE AND CHOLECALCIFEROL [Concomitant]
     Route: 048
  3. ACETAMINOPHEN AND DIHYDROCODEINE BITARTRATE [Concomitant]
     Route: 048
  4. MEBEVERINE HYDROCHLORIDE [Concomitant]
     Route: 048
  5. NITRAZEPAM [Concomitant]
     Route: 048
  6. PSYLLIUM HUSK [Concomitant]
     Route: 048

REACTIONS (6)
  - EYE PAIN [None]
  - HAEMATEMESIS [None]
  - OCULAR HYPERAEMIA [None]
  - OESOPHAGITIS [None]
  - SCLERITIS [None]
  - VISION BLURRED [None]
